FAERS Safety Report 22611829 (Version 1)
Quarter: 2023Q2

REPORT INFORMATION
  Report Type: Report from Study
  Country: NL (occurrence: NL)
  Receive Date: 20230616
  Receipt Date: 20230616
  Transmission Date: 20230721
  Serious: Yes (Death, Other)
  Sender: FDA-Public Use
  Company Number: NL-VER-202300056

PATIENT
  Sex: Male

DRUGS (1)
  1. TRIPTORELIN PAMOATE [Suspect]
     Active Substance: TRIPTORELIN PAMOATE
     Indication: Prostate cancer
     Dosage: SOLVENT 2 ML (1ST), POWDER AND SOLVENT FOR SUSPENSION FOR INJECTION
     Route: 030
     Dates: start: 20230302

REACTIONS (1)
  - Death [Fatal]
